FAERS Safety Report 10053122 (Version 2)
Quarter: 2014Q2

REPORT INFORMATION
  Report Type: Spontaneous
  Country: US (occurrence: US)
  Receive Date: 20140402
  Receipt Date: 20140407
  Transmission Date: 20141212
  Serious: Yes (Hospitalization)
  Sender: FDA-Public Use
  Company Number: US-ACTELION-A-NJ2014-96590

PATIENT
  Age: 51 Year
  Sex: Male

DRUGS (3)
  1. OPSUMIT [Suspect]
     Indication: CONNECTIVE TISSUE DISORDER
     Dosage: 10 MG, QD
     Route: 048
     Dates: start: 20140110
  2. REMODULIN [Concomitant]
  3. REVATIO [Concomitant]

REACTIONS (5)
  - Haematochezia [Unknown]
  - Hypotension [Unknown]
  - Constipation [Unknown]
  - Haemoglobin decreased [Unknown]
  - Abdominal discomfort [Unknown]
